FAERS Safety Report 7549212-9 (Version None)
Quarter: 2011Q2

REPORT INFORMATION
  Report Type: 
  Country: None (occurrence: None)
  Receive Date: 20110615
  Receipt Date: 20110602
  Transmission Date: 20111010
  Serious: Yes (Other)
  Sender: FDA-Public Use
  Company Number: PHHY2011CA20017

PATIENT
  Sex: Female

DRUGS (1)
  1. ZOLEDRONIC ACID [Suspect]
     Indication: OSTEOPOROSIS
     Route: 042
     Dates: start: 20091029

REACTIONS (3)
  - GLOMERULAR FILTRATION RATE DECREASED [None]
  - RENAL DISORDER [None]
  - BLOOD CREATINE INCREASED [None]
